FAERS Safety Report 9887880 (Version 1)
Quarter: 2014Q1

REPORT INFORMATION
  Report Type: Spontaneous
  Country: US (occurrence: None)
  Receive Date: 20140207
  Receipt Date: 20140207
  Transmission Date: 20141002
  Serious: Yes (Hospitalization)
  Sender: FDA-Public Use
  Company Number: None

PATIENT
  Age: 77 Year
  Sex: Male
  Weight: 84.1 kg

DRUGS (1)
  1. WARFARIN [Suspect]
     Route: 048
     Dates: start: 20100420, end: 20120510

REACTIONS (5)
  - Contusion [None]
  - Coagulopathy [None]
  - Haemoglobin abnormal [None]
  - Haematocrit abnormal [None]
  - International normalised ratio increased [None]
